FAERS Safety Report 4580153-5 (Version None)
Quarter: 2005Q1

REPORT INFORMATION
  Report Type: 
  Country: None (occurrence: None)
  Receive Date: 20050127
  Receipt Date: 20040928
  Transmission Date: 20050727
  Serious: No
  Sender: FDA-Public Use
  Company Number: USA040979557

PATIENT
  Age: 13 Year
  Sex: Male
  Weight: 59 kg

DRUGS (2)
  1. STRATTERA [Suspect]
     Indication: ATTENTION DEFICIT/HYPERACTIVITY DISORDER
     Dosage: 100 MG DAY
     Dates: start: 20030901, end: 20040920
  2. LEXAPRO [Concomitant]

REACTIONS (5)
  - DRUG INEFFECTIVE [None]
  - MOOD SWINGS [None]
  - PRESCRIBED OVERDOSE [None]
  - STOMACH DISCOMFORT [None]
  - VOMITING [None]
